FAERS Safety Report 8470462 (Version 3)
Quarter: 2012Q4

REPORT INFORMATION
  Report Type: 
  Country: US (occurrence: US)
  Receive Date: 20120321
  Receipt Date: 20120907
  Transmission Date: 20130627
  Serious: Yes (Other)
  Sender: FDA-Public Use
  Company Number: US-PFIZER INC-2012071207

PATIENT
  Age: 48 Year
  Sex: Male
  Weight: 117.91 kg

DRUGS (2)
  1. DILANTIN [Suspect]
     Dosage: UNK
     Route: 042
  2. PHENYTOIN [Suspect]
     Indication: GRAND MAL CONVULSION
     Dosage: Loading dose 2300 mg
     Route: 042
     Dates: start: 20111213, end: 20111213

REACTIONS (10)
  - Purple glove syndrome [Not Recovered/Not Resolved]
  - Peripheral ischaemia [Unknown]
  - Peripheral artery thrombosis [Unknown]
  - Dry gangrene [Unknown]
  - Pulse absent [Unknown]
  - Cyanosis [Unknown]
  - Pain in extremity [Unknown]
  - Hypoaesthesia [Unknown]
  - Livedo reticularis [Unknown]
  - Peripheral coldness [Unknown]
